FAERS Safety Report 22098288 (Version 1)
Quarter: 2023Q1

REPORT INFORMATION
  Report Type: Spontaneous
  Country: US (occurrence: US)
  Receive Date: 20230315
  Receipt Date: 20230315
  Transmission Date: 20230417
  Serious: Yes (Death, Hospitalization, Other)
  Sender: FDA-Public Use
  Company Number: US-Fresenius Medical Care Renal Therapies Group-FMC-2303-000257

PATIENT
  Age: 80 Year
  Sex: Male

DRUGS (18)
  1. DELFLEX [Suspect]
     Active Substance: CALCIUM CHLORIDE\DEXTROSE\MAGNESIUM CHLORIDE\SODIUM CHLORIDE\SODIUM LACTATE
     Indication: End stage renal disease
     Route: 033
  2. CALCITRIOL [Concomitant]
     Active Substance: CALCITRIOL
  3. CALCIUM ACETATE [Concomitant]
     Active Substance: CALCIUM ACETATE
  4. ROPINIROLE [Concomitant]
     Active Substance: ROPINIROLE
  5. ATORVASTATIN [Concomitant]
     Active Substance: ATORVASTATIN
  6. DEXILANT [Concomitant]
     Active Substance: DEXLANSOPRAZOLE
  7. DUTASTERIDE [Concomitant]
     Active Substance: DUTASTERIDE
  8. ECOTRIN [Concomitant]
     Active Substance: ASPIRIN
  9. ELIQUIS [Concomitant]
     Active Substance: APIXABAN
  10. LATANOPROST [Concomitant]
     Active Substance: LATANOPROST
  11. NITROGLYCERIN [Concomitant]
     Active Substance: NITROGLYCERIN
  12. ASCORBIC ACID\BIOTIN\CALCIUM PANTOTHENATE\CYANOCOBALAMIN\FOLIC ACID\NI [Concomitant]
     Active Substance: ASCORBIC ACID\BIOTIN\CALCIUM PANTOTHENATE\CYANOCOBALAMIN\FOLIC ACID\NIACINAMIDE\PYRIDOXINE HYDROCHLO
  13. TAMSULOSIN [Concomitant]
     Active Substance: TAMSULOSIN
  14. TIMOLOL [Concomitant]
     Active Substance: TIMOLOL
  15. BENAZEPRIL [Concomitant]
     Active Substance: BENAZEPRIL HYDROCHLORIDE
  16. GENTAMICIN [Concomitant]
     Active Substance: GENTAMICIN
  17. LANTHANUM [Concomitant]
     Active Substance: LANTHANUM
  18. METOPROLOL SUCCINATE [Concomitant]
     Active Substance: METOPROLOL SUCCINATE

REACTIONS (6)
  - Bradycardia [Fatal]
  - Peritonitis bacterial [Fatal]
  - Abdominal abscess [Fatal]
  - Blood loss anaemia [Fatal]
  - Intra-abdominal haematoma [Fatal]
  - Hypokalaemia [Fatal]
